FAERS Safety Report 15882316 (Version 1)
Quarter: 2019Q1

REPORT INFORMATION
  Report Type: Spontaneous
  Country: JP (occurrence: JP)
  Receive Date: 20190128
  Receipt Date: 20190128
  Transmission Date: 20190417
  Serious: Yes (Death)
  Sender: FDA-Public Use
  Company Number: PHJP2016JP036738

PATIENT
  Age: 61 Year
  Sex: Female

DRUGS (2)
  1. IMATINIB. [Suspect]
     Active Substance: IMATINIB MESYLATE
     Dosage: 400 MG, QD
     Route: 065
  2. IMATINIB. [Suspect]
     Active Substance: IMATINIB MESYLATE
     Indication: PULMONARY HYPERTENSION
     Dosage: 200 MG, QD
     Route: 065

REACTIONS (3)
  - Malignant neoplasm progression [Fatal]
  - Breast cancer [Fatal]
  - Product use in unapproved indication [Unknown]
